FAERS Safety Report 6390884-2 (Version None)
Quarter: 2009Q4

REPORT INFORMATION
  Report Type: 
  Country: None (occurrence: None)
  Receive Date: 20091003
  Receipt Date: 20090918
  Transmission Date: 20100525
  Serious: Yes (Hospitalization)
  Sender: FDA-Public Use
  Company Number: 6054619

PATIENT
  Age: 40 Year
  Sex: Female

DRUGS (5)
  1. LEVOTHYROXINE SODIUM [Suspect]
     Indication: DRUG USE FOR UNKNOWN INDICATION
     Dosage: 1 DOSAGE FORMS - (1 DOSAGE FORMS, 1 IN 1 D)
     Route: 048
     Dates: start: 20090123
  2. BASDENE (25 MG, TABLET) (BENZYLTHIOURACIL) [Suspect]
     Indication: BASEDOW'S DISEASE
     Dosage: 225 MG (225 MG, 1 IN 1 D)
     Route: 048
     Dates: start: 20080123, end: 20090401
  3. PRORACYL (50 MG TABLET) (PROPILTHIOURACIL) [Suspect]
     Indication: BASEDOW'S DISEASE
     Dosage: 300 MG (1 IN 1 D), 200 MG 91 IN 1 D), 100 MG (1 IN 1 D)
     Route: 048
     Dates: start: 20090401, end: 20090630
  4. PRORACYL (50 MG TABLET) (PROPILTHIOURACIL) [Suspect]
     Indication: BASEDOW'S DISEASE
     Dosage: 300 MG (1 IN 1 D), 200 MG 91 IN 1 D), 100 MG (1 IN 1 D)
     Route: 048
     Dates: start: 20090630, end: 20090731
  5. PRORACYL (50 MG TABLET) (PROPILTHIOURACIL) [Suspect]
     Indication: BASEDOW'S DISEASE
     Dosage: 300 MG (1 IN 1 D), 200 MG 91 IN 1 D), 100 MG (1 IN 1 D)
     Route: 048
     Dates: start: 20090731, end: 20090831

REACTIONS (5)
  - ACTIVATED PARTIAL THROMBOPLASTIN TIME PROLONGED [None]
  - ANTINEUTROPHIL CYTOPLASMIC ANTIBODY [None]
  - ARTHRALGIA [None]
  - LEUKOPENIA [None]
  - NEUTROPENIA [None]
